FAERS Safety Report 6311666-3 (Version None)
Quarter: 2009Q3

REPORT INFORMATION
  Report Type: 
  Country: None (occurrence: None)
  Receive Date: 20090817
  Receipt Date: 20090529
  Transmission Date: 20100115
  Serious: No
  Sender: FDA-Public Use
  Company Number: US-B.I. PHARMACEUTICALS,INC./RIDGEFIELD-2009-BP-09613BP

PATIENT

DRUGS (3)
  1. VIRAMUNE [Suspect]
     Dates: start: 20010101
  2. ABACAVIR [Concomitant]
     Dates: start: 20010101
  3. EPZICOM [Concomitant]

REACTIONS (1)
  - GASTROOESOPHAGEAL REFLUX DISEASE [None]
